APPROVED DRUG PRODUCT: DROXIDOPA
Active Ingredient: DROXIDOPA
Strength: 100MG
Dosage Form/Route: CAPSULE;ORAL
Application: A215265 | Product #001 | TE Code: AB
Applicant: ADAPTIS PHARMA PRIVATE LTD
Approved: Nov 1, 2021 | RLD: No | RS: No | Type: RX